FAERS Safety Report 25754282 (Version 1)
Quarter: 2025Q3

REPORT INFORMATION
  Report Type: Spontaneous
  Country: CO (occurrence: CO)
  Receive Date: 20250903
  Receipt Date: 20250903
  Transmission Date: 20251021
  Serious: Yes (Other)
  Sender: CELLTRION
  Company Number: CO-CELLTRION INC.-2023CO010645

PATIENT

DRUGS (16)
  1. INFLIXIMAB [Suspect]
     Active Substance: INFLIXIMAB
     Indication: Crohn^s disease
     Route: 042
     Dates: start: 20230203
  2. INFLIXIMAB [Suspect]
     Active Substance: INFLIXIMAB
     Indication: Spondyloarthropathy
     Route: 042
     Dates: start: 20230329
  3. INFLIXIMAB [Suspect]
     Active Substance: INFLIXIMAB
     Route: 042
     Dates: start: 20230315
  4. INFLIXIMAB [Suspect]
     Active Substance: INFLIXIMAB
     Route: 042
     Dates: start: 20230329
  5. INFLIXIMAB [Suspect]
     Active Substance: INFLIXIMAB
     Route: 042
     Dates: start: 20230426
  6. INFLIXIMAB [Suspect]
     Active Substance: INFLIXIMAB
     Route: 042
  7. INFLIXIMAB [Suspect]
     Active Substance: INFLIXIMAB
     Route: 042
     Dates: start: 20230803
  8. INFLIXIMAB [Suspect]
     Active Substance: INFLIXIMAB
     Dates: start: 20240517
  9. INFLIXIMAB [Suspect]
     Active Substance: INFLIXIMAB
     Dates: start: 20240712
  10. INFLIXIMAB [Suspect]
     Active Substance: INFLIXIMAB
     Dosage: 300 MILLIGRAM, EVERY 4 WEEKS
     Route: 042
     Dates: start: 20230315
  11. INFLIXIMAB [Suspect]
     Active Substance: INFLIXIMAB
     Dosage: 300 MILLIGRAM, EVERY 4 WEEKS
     Route: 042
     Dates: start: 20241201
  12. INFLIXIMAB [Suspect]
     Active Substance: INFLIXIMAB
     Dosage: 300 MILLIGRAM, EVERY 4 WEEKS
     Route: 042
     Dates: start: 20250301
  13. IBUPROFEN [Concomitant]
     Active Substance: IBUPROFEN
     Indication: Pain
  14. HYDROCODONE [Concomitant]
     Active Substance: HYDROCODONE
  15. PREGABALIN [Concomitant]
     Active Substance: PREGABALIN
  16. SULFASALAZINE [Concomitant]
     Active Substance: SULFASALAZINE

REACTIONS (14)
  - Hypertensive crisis [Recovering/Resolving]
  - Cough [Recovered/Resolved]
  - Discomfort [Unknown]
  - Arthralgia [Unknown]
  - Dizziness [Recovered/Resolved]
  - Headache [Recovered/Resolved]
  - Depression [Unknown]
  - Pruritus [Recovered/Resolved]
  - Treatment noncompliance [Unknown]
  - Underdose [Unknown]
  - Intentional product use issue [Unknown]
  - Inappropriate schedule of product administration [Unknown]
  - Treatment failure [Unknown]
  - Overdose [Unknown]

NARRATIVE: CASE EVENT DATE: 20230502
